FAERS Safety Report 21573422 (Version 1)
Quarter: 2022Q4

REPORT INFORMATION
  Report Type: Spontaneous
  Country: US (occurrence: None)
  Receive Date: 20221109
  Receipt Date: 20221109
  Transmission Date: 20230112
  Serious: Yes (Other)
  Sender: FDA-Public Use
  Company Number: None

PATIENT
  Age: 67 Year
  Sex: Male
  Weight: 115.65 kg

DRUGS (1)
  1. ROSUVASTATIN [Suspect]
     Active Substance: ROSUVASTATIN
     Indication: Prophylaxis
     Dosage: OTHER QUANTITY : 1 TABLET(S);?FREQUENCY : DAILY;?
     Route: 048
     Dates: start: 20220930, end: 20221102

REACTIONS (6)
  - Blood glucose increased [None]
  - Pain in extremity [None]
  - Arthralgia [None]
  - Sleep disorder [None]
  - Peripheral swelling [None]
  - Product prescribing issue [None]

NARRATIVE: CASE EVENT DATE: 20221005
